FAERS Safety Report 4822875-4 (Version None)
Quarter: 2005Q4

REPORT INFORMATION
  Report Type: 
  Country: None (occurrence: None)
  Receive Date: 20051108
  Receipt Date: 20051028
  Transmission Date: 20060501
  Serious: Yes (Hospitalization)
  Sender: FDA-Public Use
  Company Number: US-BRISTOL-MYERS SQUIBB COMPANY-13160866

PATIENT
  Age: 56 Year
  Sex: Female
  Weight: 73 kg

DRUGS (4)
  1. COUMADIN [Suspect]
     Indication: THROMBOSIS PROPHYLAXIS
     Dosage: 12 MILLIGRAMS DAILY, EXCEPT 15 MILLIGRAMS ON SATURDAY AND SUNDAY
     Dates: end: 20050917
  2. LOVENOX [Suspect]
     Indication: THROMBOSIS PROPHYLAXIS
     Route: 058
     Dates: start: 20050908, end: 20050917
  3. ADVAIR DISKUS 100/50 [Concomitant]
  4. DEMADEX [Concomitant]

REACTIONS (2)
  - SPINAL HAEMATOMA [None]
  - URINARY TRACT INFECTION [None]
